FAERS Safety Report 24760792 (Version 1)
Quarter: 2024Q4

REPORT INFORMATION
  Report Type: Spontaneous
  Country: US (occurrence: US)
  Receive Date: 20241220
  Receipt Date: 20241220
  Transmission Date: 20250115
  Serious: Yes (Life-Threatening, Hospitalization, Other)
  Sender: BRISTOL-MYERS SQUIBB COMPANY
  Company Number: US-BRISTOL-MYERS SQUIBB COMPANY-2024-195902

PATIENT
  Age: 67 Year
  Sex: Male

DRUGS (1)
  1. APIXABAN [Suspect]
     Active Substance: APIXABAN
     Indication: Deep vein thrombosis

REACTIONS (3)
  - Hyperthyroidism [Recovering/Resolving]
  - Thyroid haemorrhage [Recovering/Resolving]
  - Thyrotoxic crisis [Recovering/Resolving]
